FAERS Safety Report 5004596-0 (Version None)
Quarter: 2006Q2

REPORT INFORMATION
  Report Type: 
  Country: None (occurrence: None)
  Receive Date: 20060516
  Receipt Date: 20060516
  Transmission Date: 20061013
  Serious: Yes (Hospitalization)
  Sender: FDA-Public Use
  Company Number: None

PATIENT
  Age: 47 Year
  Sex: Female
  Weight: 61.2356 kg

DRUGS (1)
  1. LANTUS [Suspect]
     Indication: HYPERGLYCAEMIA
     Dosage: 17U/12U QAM/QPM SQ
     Route: 058
     Dates: start: 20050628, end: 20050628

REACTIONS (9)
  - BLOOD GLUCOSE INCREASED [None]
  - CONFUSIONAL STATE [None]
  - FALL [None]
  - HEAD INJURY [None]
  - HYPOGLYCAEMIA [None]
  - INCORRECT DOSE ADMINISTERED [None]
  - LOSS OF CONSCIOUSNESS [None]
  - NAUSEA [None]
  - SOMNOLENCE [None]
